FAERS Safety Report 9080586 (Version 3)
Quarter: 2014Q3

REPORT INFORMATION
  Report Type: Spontaneous
  Country: FR (occurrence: FR)
  Receive Date: 20130218
  Receipt Date: 20140724
  Transmission Date: 20150326
  Serious: Yes (Hospitalization, Other)
  Sender: FDA-Public Use
  Company Number: FR-BRISTOL-MYERS SQUIBB COMPANY-17339631

PATIENT
  Age: 52 Year
  Sex: Female

DRUGS (12)
  1. DURAGESIC [Concomitant]
     Active Substance: FENTANYL
     Dosage: 1 PATCH
     Route: 062
  2. MOTILIUM [Concomitant]
     Active Substance: DOMPERIDONE
     Dosage: 3 DF DAILY WHEN NEEDED
     Route: 048
     Dates: start: 20130114
  3. LIPANTHYL [Concomitant]
     Active Substance: FENOFIBRATE
     Indication: HYPERTRIGLYCERIDAEMIA
     Dosage: 160 MG TABLET
     Route: 048
     Dates: start: 2012
  4. ZOPHREN [Concomitant]
     Active Substance: ONDANSETRON
     Indication: GASTROINTESTINAL DISORDER
     Dosage: 6 MG TAB?3DF: 24 MG
     Route: 048
  5. SEROPRAM [Concomitant]
     Active Substance: CITALOPRAM HYDROBROMIDE
     Dosage: 20 MG TABLET
     Route: 048
     Dates: start: 20130114
  6. LYSODREN [Suspect]
     Active Substance: MITOTANE
     Indication: ADRENOCORTICAL CARCINOMA
     Dosage: INTERRUPTED 02JAN13?REINTRODUCED IN APR2013
     Route: 048
     Dates: start: 201201
  7. EUPANTOL [Suspect]
     Active Substance: PANTOPRAZOLE SODIUM
     Route: 048
  8. DOLIPRANE [Concomitant]
     Active Substance: ACETAMINOPHEN
     Indication: GASTROINTESTINAL DISORDER
     Dosage: 1 G TABLET
     Route: 048
     Dates: start: 20130114
  9. HYDROCORTISONE. [Concomitant]
     Active Substance: HYDROCORTISONE
     Indication: ADRENAL INSUFFICIENCY
     Dosage: 10 MG?5DF=50 GM
     Route: 048
  10. ARIXTRA [Concomitant]
     Active Substance: FONDAPARINUX SODIUM
     Dosage: 2.5 MG/ 0.5 ML SOLUTION FOR INJECTION
     Route: 058
  11. LEXOMIL [Concomitant]
     Active Substance: BROMAZEPAM
     Dosage: 12 MG TABLET
     Dates: start: 20130114
  12. OMACOR [Concomitant]
     Active Substance: OMEGA-3-ACID ETHYL ESTERS
     Indication: HYPERTRIGLYCERIDAEMIA
     Dosage: 1 GRAM CAP
     Route: 048

REACTIONS (3)
  - Pancreatitis [Not Recovered/Not Resolved]
  - Renal failure acute [Unknown]
  - Hypertriglyceridaemia [Recovering/Resolving]

NARRATIVE: CASE EVENT DATE: 201208
